FAERS Safety Report 9172974 (Version 2)
Quarter: 2013Q2

REPORT INFORMATION
  Report Type: Spontaneous
  Country: US (occurrence: None)
  Receive Date: 20130313
  Receipt Date: 20130410
  Transmission Date: 20140414
  Serious: Yes (Other)
  Sender: FDA-Public Use
  Company Number: JPI-P-030317

PATIENT
  Age: 38 Year
  Sex: Male

DRUGS (1)
  1. XYREM [Suspect]
     Indication: PRODUCT USED FOR UNKNOWN INDICATION
     Dosage: 8 GM ( 4 GM, 2 IN 1 D), ORAL
     Route: 048
     Dates: start: 20120822

REACTIONS (3)
  - Discomfort [None]
  - Post procedural discomfort [None]
  - Scrotal disorder [None]
